FAERS Safety Report 5585866-4 (Version None)
Quarter: 2007Q4

REPORT INFORMATION
  Report Type: 
  Country: None (occurrence: None)
  Receive Date: 20071205
  Receipt Date: 20061204
  Transmission Date: 20080405
  Serious: Yes (Life-Threatening, Hospitalization, Disabling, Other)
  Sender: FDA-Public Use
  Company Number: HQWYE486206DEC06

PATIENT
  Age: 45 Year
  Sex: Female
  Weight: 60.84 kg

DRUGS (5)
  1. EFFEXOR XR [Suspect]
     Indication: ANXIETY
     Dosage: 37.5 TO 75 MG DAILY, ORAL
     Route: 048
     Dates: start: 20050526, end: 20060711
  2. EFFEXOR XR [Suspect]
     Indication: GENERALISED ANXIETY DISORDER
     Dosage: 37.5 TO 75 MG DAILY, ORAL
     Route: 048
     Dates: start: 20050526, end: 20060711
  3. EFFEXOR XR [Suspect]
     Indication: MAJOR DEPRESSION
     Dosage: 37.5 TO 75 MG DAILY, ORAL
     Route: 048
     Dates: start: 20050526, end: 20060711
  4. EFFEXOR XR [Suspect]
     Indication: PANIC REACTION
     Dosage: 37.5 TO 75 MG DAILY, ORAL
     Route: 048
     Dates: start: 20050526, end: 20060711
  5. EFFEXOR XR [Suspect]
     Indication: SOCIAL PHOBIA
     Dosage: 37.5 TO 75 MG DAILY, ORAL
     Route: 048
     Dates: start: 20050526, end: 20060711

REACTIONS (2)
  - PLATELET COUNT DECREASED [None]
  - STEVENS-JOHNSON SYNDROME [None]
